FAERS Safety Report 6044146-3 (Version None)
Quarter: 2009Q1

REPORT INFORMATION
  Report Type: 
  Country: None (occurrence: None)
  Receive Date: 20090120
  Receipt Date: 20090112
  Transmission Date: 20090719
  Serious: Yes (Other)
  Sender: FDA-Public Use
  Company Number: US-ELI_LILLY_AND_COMPANY-US200901001591

PATIENT
  Sex: Female

DRUGS (6)
  1. HUMULIN R [Suspect]
  2. HUMULIN R [Suspect]
     Dosage: UNK, UNKNOWN
  3. HUMULIN N [Suspect]
  4. HUMULIN N [Suspect]
     Dosage: UNK, UNKNOWN
  5. LEVAQUIN [Concomitant]
     Indication: INFECTION
     Dosage: UNK, UNK
     Dates: start: 20080901
  6. DIOVAN [Concomitant]
     Dosage: UNK, 2/D

REACTIONS (11)
  - CONVULSION [None]
  - DYSPNOEA [None]
  - EATING DISORDER [None]
  - HALLUCINATION [None]
  - HYPERSENSITIVITY [None]
  - INFECTION [None]
  - LYMPHADENOPATHY [None]
  - NON-HODGKIN'S LYMPHOMA [None]
  - ORAL PAIN [None]
  - OROPHARYNGEAL BLISTERING [None]
  - PYREXIA [None]
